FAERS Safety Report 5239137-6 (Version None)
Quarter: 2007Q1

REPORT INFORMATION
  Report Type: 
  Country: None (occurrence: None)
  Receive Date: 20061208
  Receipt Date: 20050516
  Transmission Date: 20070707
  Serious: Yes (Other)
  Sender: FDA-Public Use
  Company Number: 2005UW07523

PATIENT
  Age: 76 Year
  Sex: Male

DRUGS (5)
  1. CRESTOR [Suspect]
     Indication: BLOOD CHOLESTEROL INCREASED
  2. CARDURA /IRE/ [Concomitant]
  3. COUMADIN [Concomitant]
  4. NO MATCH [Concomitant]
  5. LISINOPRIL [Concomitant]

REACTIONS (3)
  - DIARRHOEA [None]
  - FRONTAL SINUS OPERATION [None]
  - RHINORRHOEA [None]
